FAERS Safety Report 15330125 (Version 1)
Quarter: 2018Q3

REPORT INFORMATION
  Report Type: Spontaneous
  Country: GB (occurrence: GB)
  Receive Date: 20180829
  Receipt Date: 20180829
  Transmission Date: 20181010
  Serious: Yes (Hospitalization, Other)
  Sender: FDA-Public Use
  Company Number: PHHY2017GB204638

PATIENT
  Age: 86 Year
  Sex: Female
  Weight: 70.6 kg

DRUGS (12)
  1. VENETOCLAX. [Suspect]
     Active Substance: VENETOCLAX
     Indication: PLASMA CELL MYELOMA
     Dosage: 800 MG, QD
     Route: 048
     Dates: start: 20170131, end: 20170302
  2. OMEPRAZOLE. [Concomitant]
     Active Substance: OMEPRAZOLE
     Indication: EPIGASTRIC DISCOMFORT
     Dosage: 20 MG, QD (DOSAGE FORM: UNSPECIFIED)
     Route: 048
     Dates: start: 20170131
  3. DIGOXIN. [Concomitant]
     Active Substance: DIGOXIN
     Indication: ATRIAL FIBRILLATION
     Dosage: 125 UG, QD (DOSAGE FORM: UNSPECIFIED)
     Route: 048
     Dates: start: 20110331
  4. ACYCLOVIR. [Concomitant]
     Active Substance: ACYCLOVIR
     Indication: ANTIVIRAL PROPHYLAXIS
     Dosage: 800 MG, QD (DOSAGE FORM: UNSPECIFIED)
     Route: 048
     Dates: start: 20170130
  5. BORTEZOMIB. [Suspect]
     Active Substance: BORTEZOMIB
     Indication: PLASMA CELL MYELOMA
     Dosage: 1.8 MG, CYCLIC (DOSAGE FORM: LYOPHILIZED POWDER, ON DAY 1, 4, 8, AND 11 OF EACH 21 DAYS CYCLE.)
     Route: 058
     Dates: start: 20170131, end: 20170407
  6. APIXABAN [Concomitant]
     Active Substance: APIXABAN
     Indication: ATRIAL FIBRILLATION
     Dosage: 5 MG, QD
     Route: 048
     Dates: start: 20151015
  7. DEXAMETHASONE. [Suspect]
     Active Substance: DEXAMETHASONE
     Indication: PLASMA CELL MYELOMA
     Dosage: 8 MG, CYCLIC (DOSAGE FORM: UNSPECIFIED, ON DAY 1, 2, 4, 5, 8, 9, 11 AND 12 OF EACH 21 DAYS CYCLE)
     Route: 048
     Dates: start: 20170131, end: 20170328
  8. TRAMADOL. [Concomitant]
     Active Substance: TRAMADOL
     Indication: OSTEOARTHRITIS
     Dosage: 200 MG, QD (DOSAGE FORM: UNSPECIFIED)
     Route: 048
     Dates: start: 2015
  9. COTRIMOXAZOLE [Concomitant]
     Active Substance: SULFAMETHOXAZOLE\TRIMETHOPRIM
     Indication: INFECTION PROPHYLAXIS
     Dosage: 1440 MG, QW (DOSAGE FORM: UNSPECIFIED)
     Route: 048
     Dates: start: 20170131
  10. INSULIN ASPART [Concomitant]
     Active Substance: INSULIN ASPART
     Indication: TYPE 2 DIABETES MELLITUS
     Dosage: 2 ?G/L, QD (DOSAGE FORM: UNSPECIFIED)
     Route: 058
     Dates: start: 20010813
  11. LOPERAMIDE [Concomitant]
     Active Substance: LOPERAMIDE
     Indication: COLITIS ULCERATIVE
     Dosage: 2 MG, (DOSAGE FORM: UNSPECIFIED)
     Route: 048
     Dates: start: 20101016
  12. BISOPROLOL [Concomitant]
     Active Substance: BISOPROLOL
     Indication: HYPERTENSION
     Dosage: 5 MG, QD (DOSAGE FORM: UNSPECIFIED)
     Route: 048
     Dates: start: 20110527

REACTIONS (2)
  - Hypotension [Recovered/Resolved]
  - Syncope [Recovered/Resolved]

NARRATIVE: CASE EVENT DATE: 20170410
